FAERS Safety Report 6595904-8 (Version None)
Quarter: 2010Q1

REPORT INFORMATION
  Report Type: 
  Country: None (occurrence: None)
  Receive Date: 20100219
  Receipt Date: 20100219
  Transmission Date: 20100710
  Serious: Yes (Life-Threatening, Hospitalization)
  Sender: FDA-Public Use
  Company Number: None

PATIENT
  Sex: Female
  Weight: 83.0083 kg

DRUGS (1)
  1. RYZOLT [Suspect]
     Indication: MYALGIA
     Dosage: 1X ONLY NIGHT OF 1-13-10
     Dates: start: 20100113

REACTIONS (6)
  - BLOOD PRESSURE DECREASED [None]
  - DIZZINESS [None]
  - HEART RATE DECREASED [None]
  - HYPERHIDROSIS [None]
  - PALLOR [None]
  - PRESYNCOPE [None]
